FAERS Safety Report 7851135-2 (Version None)
Quarter: 2011Q4

REPORT INFORMATION
  Report Type: 
  Country: None (occurrence: None)
  Receive Date: 20111026
  Receipt Date: 20111017
  Transmission Date: 20120403
  Serious: Yes (Hospitalization)
  Sender: FDA-Public Use
  Company Number: US-ASTRAZENECA-2011SE34824

PATIENT
  Age: 89 Year
  Sex: Female

DRUGS (2)
  1. ATENOLOL [Suspect]
     Route: 048
  2. VIMOVO [Suspect]
     Indication: OSTEOARTHRITIS
     Dosage: 500 MG/20 MG BID
     Route: 048
     Dates: start: 20110531

REACTIONS (4)
  - BRADYCARDIA [None]
  - VASCULAR RUPTURE [None]
  - DIZZINESS [None]
  - WRONG TECHNIQUE IN DRUG USAGE PROCESS [None]
